FAERS Safety Report 5700544-6 (Version None)
Quarter: 2008Q2

REPORT INFORMATION
  Report Type: 
  Country: None (occurrence: None)
  Receive Date: 20080409
  Receipt Date: 20080409
  Transmission Date: 20081010
  Serious: No
  Sender: FDA-Public Use
  Company Number: None

PATIENT
  Sex: Male
  Weight: 90 kg

DRUGS (1)
  1. SENSORCAINE [Suspect]
     Dosage: 14MG X 1 INTRATHECAL
     Route: 037
     Dates: start: 20080404

REACTIONS (2)
  - DRUG EFFECT DECREASED [None]
  - MONOPLEGIA [None]
